FAERS Safety Report 20877794 (Version 1)
Quarter: 2022Q2

REPORT INFORMATION
  Report Type: Spontaneous
  Country: US (occurrence: None)
  Receive Date: 20220526
  Receipt Date: 20220526
  Transmission Date: 20220721
  Serious: Yes (Hospitalization)
  Sender: FDA-Public Use
  Company Number: None

PATIENT
  Age: 49 Year
  Sex: Male
  Weight: 99 kg

DRUGS (2)
  1. PHENTERMINE [Suspect]
     Active Substance: PHENTERMINE
     Indication: Weight decreased
     Dosage: 37.5 MG AM PO
     Route: 048
     Dates: start: 20210408, end: 20210914
  2. PHENTERMINE [Suspect]
     Active Substance: PHENTERMINE
     Indication: Obesity

REACTIONS (2)
  - Acute myocardial infarction [None]
  - Coronary artery disease [None]

NARRATIVE: CASE EVENT DATE: 20210913
